FAERS Safety Report 8537127-9 (Version None)
Quarter: 2012Q3

REPORT INFORMATION
  Report Type: 
  Country: None (occurrence: None)
  Receive Date: 20120725
  Receipt Date: 20120719
  Transmission Date: 20120928
  Serious: Yes (Hospitalization, Other)
  Sender: FDA-Public Use
  Company Number: CA-CELGENEUS-028-21880-12062117

PATIENT
  Sex: Male
  Weight: 99.5 kg

DRUGS (24)
  1. REVLIMID [Suspect]
     Dosage: 25 MILLIGRAM
     Route: 048
     Dates: start: 20111201, end: 20120210
  2. DEXAMETHASONE [Suspect]
     Indication: MULTIPLE MYELOMA
     Dosage: 5.7143 MILLIGRAM
     Route: 065
     Dates: start: 20110616, end: 20111027
  3. THALIDOMIDE [Suspect]
     Indication: MULTIPLE MYELOMA
     Route: 048
     Dates: start: 20090718, end: 20101229
  4. EPREX [Concomitant]
     Dosage: 40000 IU (INTERNATIONAL UNIT)
     Route: 058
     Dates: start: 20111226
  5. LASIX [Concomitant]
     Dosage: 20 MILLIGRAM
     Route: 048
     Dates: start: 20100101
  6. SENOKOT [Concomitant]
     Indication: CONSTIPATION
     Dosage: 1-2 TABLET
     Route: 048
     Dates: start: 20091117
  7. REVLIMID [Suspect]
     Indication: MULTIPLE MYELOMA
     Dosage: 25 MILLIGRAM
     Route: 048
     Dates: start: 20110616, end: 20111025
  8. WARFARIN SODIUM [Concomitant]
     Indication: ATRIAL FIBRILLATION
     Dosage: 5 MILLIGRAM
     Route: 048
     Dates: start: 20111102, end: 20120529
  9. LOPRESSOR [Concomitant]
     Indication: HYPERTENSION
     Dosage: 50 MILLIGRAM
     Route: 048
     Dates: start: 20100217
  10. TYLENOL ARTHRITIS [Concomitant]
     Dosage: 650 MILLIGRAM
     Route: 048
     Dates: start: 20091127
  11. LIPITOR [Concomitant]
     Dosage: 80 MILLIGRAM
     Route: 048
     Dates: start: 20090917
  12. PLAVIX [Concomitant]
     Dosage: 75 MILLIGRAM
     Route: 048
     Dates: start: 20041201, end: 20120529
  13. HEPARIN [Concomitant]
     Indication: ATRIAL FIBRILLATION
     Dosage: 18000 IU (INTERNATIONAL UNIT)
     Route: 058
     Dates: start: 20120530, end: 20120604
  14. REVLIMID [Suspect]
     Dosage: 25 MILLIGRAM
     Route: 048
     Dates: start: 20120223, end: 20120509
  15. DEXAMETHASONE [Suspect]
     Dosage: 5.7143 MILLIGRAM
     Route: 065
     Dates: start: 20111201, end: 20120120
  16. DEXAMETHASONE [Suspect]
     Dosage: 5.7143 MILLIGRAM
     Route: 065
     Dates: start: 20120223, end: 20120510
  17. OMEPRAZOLE (PRISOLEC) [Concomitant]
     Dosage: 20 MILLIGRAM
     Route: 048
     Dates: start: 20090917
  18. PLAVIX [Concomitant]
     Dosage: 75 MILLIGRAM
     Route: 048
     Dates: start: 20120607
  19. SULFATRIM-DS [Concomitant]
     Indication: ANTI-INFECTIVE THERAPY
     Dosage: 1 TABLET
     Route: 048
     Dates: start: 20091001
  20. WARFARIN SODIUM [Concomitant]
     Dosage: 5 MILLIGRAM
     Route: 048
     Dates: start: 20120607
  21. ASPIRIN [Concomitant]
     Dosage: 81 MILLIGRAM
     Route: 048
     Dates: start: 20090917
  22. PAMIDRONATE DISODIUM [Concomitant]
     Indication: OSTEOPENIA
     Dosage: .0238 TABLET
     Route: 041
     Dates: start: 20091127
  23. REPLAVITIVE [Concomitant]
     Indication: SUPPLEMENTATION THERAPY
     Dosage: 1 TABLET
     Route: 048
     Dates: start: 20090917
  24. COLACE [Concomitant]
     Indication: CONSTIPATION
     Dosage: 100 MILLIGRAM
     Route: 048
     Dates: start: 20091127

REACTIONS (2)
  - URINARY RETENTION [None]
  - TRANSITIONAL CELL CARCINOMA [None]
